FAERS Safety Report 14380041 (Version 2)
Quarter: 2018Q1

REPORT INFORMATION
  Report Type: Report from Study
  Country: None (occurrence: CA)
  Receive Date: 20180112
  Receipt Date: 20180209
  Transmission Date: 20180509
  Serious: Yes (Other)
  Sender: FDA-Public Use
  Company Number: CA-ABBVIE-18K-028-2218945-00

PATIENT
  Age: 60 Year
  Sex: Female

DRUGS (1)
  1. HUMIRA [Suspect]
     Active Substance: ADALIMUMAB
     Indication: CROHN^S DISEASE
     Route: 058
     Dates: start: 20170829

REACTIONS (3)
  - Intestinal obstruction [Recovered/Resolved]
  - Hyperhidrosis [Recovered/Resolved]
  - Gastrointestinal oedema [Recovered/Resolved]

NARRATIVE: CASE EVENT DATE: 20180107
